FAERS Safety Report 23508685 (Version 1)
Quarter: 2024Q1

REPORT INFORMATION
  Report Type: Spontaneous
  Country: AT (occurrence: None)
  Receive Date: 20240209
  Receipt Date: 20240209
  Transmission Date: 20240410
  Serious: Yes (Death, Hospitalization)
  Sender: FDA-Public Use
  Company Number: 2024A030432

PATIENT
  Age: 80 Year
  Sex: Male

DRUGS (15)
  1. IMFINZI [Suspect]
     Active Substance: DURVALUMAB
     Dates: start: 202311, end: 202401
  2. IMJUDO [Suspect]
     Active Substance: TREMELIMUMAB\TREMELIMUMAB-ACTL
     Dates: start: 202311, end: 202401
  3. CETEBE C [Concomitant]
  4. EZETIMIBE\ROSUVASTATIN CALCIUM [Concomitant]
     Active Substance: EZETIMIBE\ROSUVASTATIN CALCIUM
  5. CALCIUM\CHOLECALCIFEROL [Concomitant]
     Active Substance: CALCIUM\CHOLECALCIFEROL
     Dosage: KTBL 600 MG 1-0-0-1
  6. TWYNSTA [Concomitant]
     Active Substance: AMLODIPINE BESYLATE\TELMISARTAN
     Dosage: FOR RR ABOVE 170/86 TWYNSTA ? TBL
  7. NOVORAPID [Concomitant]
     Active Substance: INSULIN ASPART
     Dosage: NOVORAPIDE ABOVE 230 1 IU; ABOVE 270 2 IU
  8. CHOLECALCIFEROL [Concomitant]
     Active Substance: CHOLECALCIFEROL
     Dosage: SUNDAYS
  9. TOUJEO [Concomitant]
     Active Substance: INSULIN GLARGINE
  10. CANDESARTAN [Concomitant]
     Active Substance: CANDESARTAN
  11. SPIRIVA [Concomitant]
     Active Substance: TIOTROPIUM BROMIDE MONOHYDRATE
  12. PLAVIX [Concomitant]
     Active Substance: CLOPIDOGREL BISULFATE
  13. LEVOTHYROXINE SODIUM [Concomitant]
     Active Substance: LEVOTHYROXINE SODIUM
     Dosage: 75UG/INHAL DAILY
  14. NEBIVOLOL HYDROCHLORIDE [Concomitant]
     Active Substance: NEBIVOLOL HYDROCHLORIDE
  15. ETILEFRINE HYDROCHLORIDE [Concomitant]
     Active Substance: ETILEFRINE HYDROCHLORIDE
     Dosage: FOR RR LESS THAN 110/75 EFFORTIL 5-10 GTT

REACTIONS (7)
  - Pneumonia streptococcal [Fatal]
  - General physical health deterioration [Not Recovered/Not Resolved]
  - Acute kidney injury [Not Recovered/Not Resolved]
  - Dehydration [Not Recovered/Not Resolved]
  - Diarrhoea [Not Recovered/Not Resolved]
  - Immune-mediated enterocolitis [Not Recovered/Not Resolved]
  - Immune-mediated hypophysitis [Not Recovered/Not Resolved]

NARRATIVE: CASE EVENT DATE: 20240101
